FAERS Safety Report 19267584 (Version 1)
Quarter: 2021Q2

REPORT INFORMATION
  Report Type: Report from Study
  Country: None (occurrence: US)
  Receive Date: 20210518
  Receipt Date: 20210518
  Transmission Date: 20210717
  Serious: Yes (Death)
  Sender: FDA-Public Use
  Company Number: US-ABBVIE-21K-163-3909510-00

PATIENT
  Age: 76 Year
  Sex: Female

DRUGS (3)
  1. VENCLEXTA [Suspect]
     Active Substance: VENETOCLAX
     Indication: ACUTE MYELOID LEUKAEMIA
     Route: 048
     Dates: start: 20210223, end: 20210511
  2. INQOVI [Concomitant]
     Active Substance: CEDAZURIDINE\DECITABINE
     Indication: ACUTE MYELOID LEUKAEMIA
     Route: 048
     Dates: start: 20210223, end: 20210511
  3. JAKAFI [Concomitant]
     Active Substance: RUXOLITINIB
     Indication: ACUTE MYELOID LEUKAEMIA
     Route: 048
     Dates: start: 20210223, end: 20210511

REACTIONS (1)
  - Death [Fatal]

NARRATIVE: CASE EVENT DATE: 20210511
